FAERS Safety Report 6962306-1 (Version None)
Quarter: 2010Q3

REPORT INFORMATION
  Report Type: 
  Country: None (occurrence: None)
  Receive Date: 20100902
  Receipt Date: 20100825
  Transmission Date: 20110219
  Serious: Yes (Other)
  Sender: FDA-Public Use
  Company Number: DE-JNJFOC-20100705129

PATIENT
  Sex: Female
  Weight: 67 kg

DRUGS (9)
  1. DURAGESIC-100 [Suspect]
     Indication: PRODUCT USED FOR UNKNOWN INDICATION
     Route: 062
     Dates: start: 20100619, end: 20100707
  2. LEVOTHYROXINE SODIUM [Concomitant]
     Route: 065
  3. DECORTIN [Concomitant]
     Route: 065
  4. CELEBREX [Concomitant]
     Route: 065
  5. ATACAND [Concomitant]
     Route: 065
  6. ATORVASTATIN [Concomitant]
     Route: 065
  7. METOPROLOL SUCCINATE [Concomitant]
     Route: 065
  8. LIORESAL [Concomitant]
     Route: 065
  9. ASPIRIN [Concomitant]
     Route: 065

REACTIONS (1)
  - NEURODERMATITIS [None]
